FAERS Safety Report 25084748 (Version 3)
Quarter: 2025Q3

REPORT INFORMATION
  Report Type: Spontaneous
  Country: EU (occurrence: EU)
  Receive Date: 20250317
  Receipt Date: 20250703
  Transmission Date: 20251021
  Serious: Yes (Other)
  Sender: OCTAPHARMA
  Company Number: EU-OCTA-2025000237

PATIENT
  Age: 81 Year
  Sex: Male
  Weight: 82 kg

DRUGS (1)
  1. OCTAPLAS [Suspect]
     Active Substance: PLASMA PROTEIN FRACTION (HUMAN)
     Indication: Hypocoagulable state
     Route: 042
     Dates: start: 20250226, end: 20250226

REACTIONS (5)
  - Swollen tongue [Recovered/Resolved]
  - Swelling face [Recovered/Resolved]
  - Hypotension [Recovered/Resolved]
  - Blood catecholamines increased [Recovered/Resolved]
  - Rash macular [Recovered/Resolved]

NARRATIVE: CASE EVENT DATE: 20250226
